FAERS Safety Report 11328311 (Version 1)
Quarter: 2015Q3

REPORT INFORMATION
  Report Type: Spontaneous
  Country: BR (occurrence: BR)
  Receive Date: 20150731
  Receipt Date: 20150731
  Transmission Date: 20151125
  Serious: Yes (Other)
  Sender: FDA-Public Use
  Company Number: BR-ASTRAZENECA-2015SE73719

PATIENT
  Age: 80 Year
  Sex: Female
  Weight: 71 kg

DRUGS (3)
  1. GLIFAGE [Suspect]
     Active Substance: METFORMIN HYDROCHLORIDE
     Indication: DIABETES MELLITUS
     Dosage: 500MG BY MORNING / 1000MG AT NIGHT, TWO TIMES A DAY
     Route: 048
  2. ATACAND [Suspect]
     Active Substance: CANDESARTAN CILEXETIL
     Indication: HYPERTENSION
     Route: 048
  3. TAMIRAM [Suspect]
     Active Substance: LEVOFLOXACIN
     Indication: PNEUMONIA
     Dosage: DAILY
     Route: 048
     Dates: start: 20150722

REACTIONS (2)
  - Chromaturia [Not Recovered/Not Resolved]
  - Pneumonia [Unknown]

NARRATIVE: CASE EVENT DATE: 2015
